FAERS Safety Report 5256363-0 (Version None)
Quarter: 2007Q1

REPORT INFORMATION
  Report Type: 
  Country: None (occurrence: None)
  Receive Date: 20061204
  Receipt Date: 20061012
  Transmission Date: 20070707
  Serious: No
  Sender: FDA-Public Use
  Company Number: 2006-BP-11374BP

PATIENT
  Sex: Male

DRUGS (5)
  1. SPIRIVA [Suspect]
     Indication: CHRONIC OBSTRUCTIVE PULMONARY DISEASE
     Dosage: 18 MCG (18 MCG, 1 CAPSULE IN MORNING), IH
     Route: 055
     Dates: start: 20060501, end: 20060901
  2. SPIRIVA [Suspect]
     Indication: EMPHYSEMA
     Dosage: 18 MCG (18 MCG, 1 CAPSULE IN MORNING), IH
     Route: 055
     Dates: start: 20060501, end: 20060901
  3. FLOVENT [Concomitant]
  4. SEREVENT [Concomitant]
  5. ALBUTEROL [Concomitant]

REACTIONS (2)
  - DRUG EFFECT DECREASED [None]
  - VISION BLURRED [None]
